FAERS Safety Report 21069715 (Version 2)
Quarter: 2022Q3

REPORT INFORMATION
  Report Type: Spontaneous
  Country: US (occurrence: US)
  Receive Date: 20220712
  Receipt Date: 20220712
  Transmission Date: 20221027
  Serious: No
  Sender: FDA-Public Use
  Company Number: US-ASTELLAS-2021US026162

PATIENT
  Age: 66 Year
  Sex: Female

DRUGS (2)
  1. MYRBETRIQ [Suspect]
     Active Substance: MIRABEGRON
     Indication: Product used for unknown indication
     Dosage: 25 MG, ONCE DAILY (FOR 3 MONTHS)
     Route: 065
     Dates: start: 20210101, end: 2021
  2. MYRBETRIQ [Suspect]
     Active Substance: MIRABEGRON
     Indication: Product used for unknown indication
     Route: 065
     Dates: start: 2021

REACTIONS (3)
  - Arthralgia [Unknown]
  - Abdominal pain [Unknown]
  - Drug ineffective [Unknown]
